FAERS Safety Report 7778086-6 (Version None)
Quarter: 2011Q3

REPORT INFORMATION
  Report Type: 
  Country: None (occurrence: None)
  Receive Date: 20110926
  Receipt Date: 20110921
  Transmission Date: 20111222
  Serious: Yes (Other)
  Sender: FDA-Public Use
  Company Number: US-PFIZER INC-2011183702

PATIENT
  Sex: Male
  Weight: 102 kg

DRUGS (17)
  1. SUTENT [Suspect]
     Indication: METASTATIC RENAL CELL CARCINOMA
     Dosage: 50 MG, DAILY, CYCLE 4 WEEKS ON, 2 OFF
     Route: 048
     Dates: start: 20110723
  2. PROVENTIL GENTLEHALER [Concomitant]
     Dosage: 2 PUFFS EVERY 4 HOURS AS NEEDED
     Route: 055
  3. FISH OIL [Concomitant]
     Dosage: 1000 MG, 3X/DAY
  4. NORVASC [Concomitant]
     Indication: HYPERTENSION
     Dosage: 5 MG, 2X/DAY
  5. CRESTOR [Concomitant]
     Indication: BLOOD TRIGLYCERIDES INCREASED
     Dosage: 20 MG, 1X/DAY
  6. CINNAMON [Concomitant]
     Dosage: 500 MG, 2X/DAY
  7. HYDROCHLOROTHIAZIDE [Concomitant]
     Indication: HYPERTENSION
     Dosage: 25 MG, 1X/DAY
  8. JANUVIA [Concomitant]
     Indication: TYPE 2 DIABETES MELLITUS
     Dosage: 100 MG, 1X/DAY
  9. TRIAMCINOLONE ACETONIDE [Concomitant]
     Dosage: 2 X DAILY AS NEEDED
     Route: 061
  10. ACETYLSALICYLIC ACID [Concomitant]
     Dosage: 81 MG, 1X/DAY - NIGHT
  11. CALCIUM CITRATE [Concomitant]
     Dosage: 750 MG, 2X/DAY
  12. ACCUPRIL [Concomitant]
     Indication: HYPERTENSION
     Dosage: 40 MG, 2X/DAY
  13. NYSTATIN [Concomitant]
     Dosage: 2 X DAILY AS NEEDED
     Route: 061
  14. CENTRUM [Concomitant]
     Dosage: 1 DF, 1X/DAY - MORNING
  15. QUININE HYDROCHLORIDE [Concomitant]
     Dosage: 166 MG, 1X/DAY
  16. HYDRALAZINE [Concomitant]
     Dosage: 25 MG, 2X/DAY
  17. IMODIUM MULTI-SYMPTOM RELIEF [Concomitant]
     Dosage: 2 MG, AS NEEDED

REACTIONS (5)
  - PALMAR-PLANTAR ERYTHRODYSAESTHESIA SYNDROME [None]
  - HYPERTENSION [None]
  - ANEURYSM [None]
  - RENAL IMPAIRMENT [None]
  - EJECTION FRACTION DECREASED [None]
